FAERS Safety Report 21402267 (Version 5)
Quarter: 2022Q4

REPORT INFORMATION
  Report Type: Report from Study
  Country: US (occurrence: US)
  Receive Date: 20221003
  Receipt Date: 20221231
  Transmission Date: 20230112
  Serious: Yes (Other)
  Sender: FDA-Public Use
  Company Number: US-NOVARTISTESTPH-NVSC2022US222450

PATIENT
  Sex: Male

DRUGS (2)
  1. COSENTYX [Suspect]
     Active Substance: SECUKINUMAB
     Indication: Psoriasis
     Dosage: 300 MG, QMO
     Route: 058
     Dates: start: 202208
  2. COSENTYX [Suspect]
     Active Substance: SECUKINUMAB
     Dosage: UNK
     Route: 058
     Dates: start: 20220815

REACTIONS (12)
  - Cerebrovascular accident [Unknown]
  - Hypoaesthesia [Unknown]
  - Fall [Unknown]
  - Dizziness [Unknown]
  - Paraesthesia [Unknown]
  - Subcutaneous abscess [Recovered/Resolved]
  - Contusion [Unknown]
  - Psoriasis [Unknown]
  - Pain in extremity [Unknown]
  - Skin fissures [Not Recovered/Not Resolved]
  - Skin discolouration [Unknown]
  - Nail disorder [Not Recovered/Not Resolved]
